FAERS Safety Report 8449155-2 (Version None)
Quarter: 2012Q2

REPORT INFORMATION
  Report Type: 
  Country: None (occurrence: None)
  Receive Date: 20120619
  Receipt Date: 20120615
  Transmission Date: 20120825
  Serious: Yes (Other)
  Sender: FDA-Public Use
  Company Number: US-PFIZER INC-2012145178

PATIENT
  Sex: Female
  Weight: 65.76 kg

DRUGS (11)
  1. CYMBALTA [Concomitant]
     Indication: NEUROPATHY PERIPHERAL
     Dosage: 60 MG,DAILY
  2. LYRICA [Suspect]
     Indication: FIBROMYALGIA
     Dosage: 225 MG, 2X/DAY
  3. LIPITOR [Suspect]
     Indication: HYPERTENSION
     Dosage: 10 MG,DAILY
  4. NORVASC [Suspect]
     Dosage: 2.5 MG,DAILY
  5. GALLAMINE TRIETHIODIDE [Concomitant]
     Dosage: 25 MG,DAILY
  6. CELEBREX [Suspect]
     Indication: PAIN
  7. LEVOTHYROXINE [Concomitant]
     Indication: THYROID DISORDER
     Dosage: 50 UG,DAILY
  8. HYDROCHLOROTHIAZIDE [Concomitant]
     Dosage: 12.5MG, DAILY
  9. CELEBREX [Suspect]
     Indication: FIBROMYALGIA
     Dosage: 200 MG, 2X/DAY
  10. AMBIEN [Concomitant]
     Indication: SLEEP DISORDER
     Dosage: 10 MG,DAILY
  11. ESTRADIOL [Concomitant]
     Indication: BLOOD OESTROGEN ABNORMAL
     Dosage: UNK

REACTIONS (4)
  - PNEUMONIA [None]
  - STAPHYLOCOCCAL INFECTION [None]
  - BACK PAIN [None]
  - WEIGHT DECREASED [None]
